FAERS Safety Report 13131894 (Version 3)
Quarter: 2017Q3

REPORT INFORMATION
  Report Type: Report from Study
  Country: US (occurrence: US)
  Receive Date: 20170119
  Receipt Date: 20170706
  Transmission Date: 20171127
  Serious: Yes (Other)
  Sender: FDA-Public Use
  Company Number: US-SAOL THERAPEUTICS-2017SAO00098

PATIENT
  Age: 45 Year
  Sex: Female

DRUGS (44)
  1. COMPOUNDED BACLOFEN [Suspect]
     Active Substance: BACLOFEN
     Dosage: 1323.4 ?G, \DAY
     Dates: start: 20161116, end: 20161209
  2. COMPOUNDED BACLOFEN [Suspect]
     Active Substance: BACLOFEN
     Dosage: 732.5 ?G, \DAY
     Dates: start: 20170301
  3. CLONIDINE. [Suspect]
     Active Substance: CLONIDINE
     Dosage: 56.80 ?G, \DAY
     Dates: start: 20160908, end: 20161013
  4. CLONIDINE. [Suspect]
     Active Substance: CLONIDINE
     Dosage: 63.60 ?G, \DAY
     Dates: start: 20161013
  5. CLONIDINE. [Suspect]
     Active Substance: CLONIDINE
     Dosage: 89.36 ?G, \DAY
     Route: 037
     Dates: start: 20161116, end: 20161209
  6. MORPHINE [Suspect]
     Active Substance: MORPHINE
     Dosage: 5.997 MG, \DAY
     Dates: start: 20161013
  7. BUPIVACAINE. [Suspect]
     Active Substance: BUPIVACAINE
     Dosage: 12.661 MG, \DAY
     Dates: start: 20161013, end: 20161209
  8. BUPIVACAINE. [Suspect]
     Active Substance: BUPIVACAINE
     Dosage: 10.464 MG, \DAY
     Dates: start: 20170301
  9. COMPOUNDED BACLOFEN [Suspect]
     Active Substance: BACLOFEN
     Dosage: 1338.9 ?G, \DAY
     Dates: start: 20161209
  10. CLONIDINE. [Suspect]
     Active Substance: CLONIDINE
     Dosage: 33.36 ?G, \DAY
     Route: 037
     Dates: start: 20160908, end: 20161013
  11. MORPHINE [Suspect]
     Active Substance: MORPHINE
     Dosage: 8.519 MG, \DAY
     Dates: start: 20160908, end: 20161013
  12. BUPIVACAINE. [Suspect]
     Active Substance: BUPIVACAINE
     Dosage: 7.995 MG, \DAY
     Dates: start: 20161013
  13. CLONIDINE. [Suspect]
     Active Substance: CLONIDINE
     Dosage: 189.05 ?G, \DAY
     Dates: start: 20161116, end: 20161209
  14. CLONIDINE. [Suspect]
     Active Substance: CLONIDINE
     Dosage: 58.78 ?G, \DAY
     Route: 037
     Dates: start: 20161219
  15. MORPHINE [Suspect]
     Active Substance: MORPHINE
     Dosage: 4.408 MG, \DAY
     Route: 037
     Dates: start: 20161219
  16. MORPHINE [Suspect]
     Active Substance: MORPHINE
     Dosage: 9.696 MG, \DAY
     Dates: start: 20161219, end: 20170301
  17. MORPHINE [Suspect]
     Active Substance: MORPHINE
     Dosage: 7.818 MG, \DAY
     Dates: start: 20170301
  18. BUPIVACAINE. [Suspect]
     Active Substance: BUPIVACAINE
     Dosage: 18.905 MG, \DAY
     Dates: start: 20161116, end: 20161209
  19. BUPIVACAINE. [Suspect]
     Active Substance: BUPIVACAINE
     Dosage: 5.878 MG, \DAY
     Route: 037
     Dates: start: 20161219
  20. COMPOUNDED BACLOFEN [Suspect]
     Active Substance: BACLOFEN
     Dosage: 791.3 ?G, \DAY
     Dates: start: 20161013
  21. COMPOUNDED BACLOFEN [Suspect]
     Active Substance: BACLOFEN
     Dosage: 411.4 ?G, \DAY
     Route: 037
     Dates: start: 20161219
  22. COMPOUNDED BACLOFEN [Suspect]
     Active Substance: BACLOFEN
     Dosage: 905.0 ?G, \DAY
     Dates: start: 20161219, end: 20170301
  23. MORPHINE [Suspect]
     Active Substance: MORPHINE
     Dosage: 6.702 MG, \DAY
     Dates: start: 20161013, end: 20161209
  24. BUPIVACAINE. [Suspect]
     Active Substance: BUPIVACAINE
     Dosage: 6.672 MG, \DAY
     Route: 037
     Dates: start: 20160908, end: 20161013
  25. COMPOUNDED BACLOFEN [Suspect]
     Active Substance: BACLOFEN
     Indication: LUMBAR RADICULOPATHY
     Dosage: 709.9 ?G, \DAY
     Dates: start: 20160908, end: 20161013
  26. CLONIDINE. [Suspect]
     Active Substance: CLONIDINE
     Dosage: 39.98 ?G, \DAY
     Dates: start: 20161013
  27. CLONIDINE. [Suspect]
     Active Substance: CLONIDINE
     Dosage: 104.64 ?G, \DAY
     Dates: start: 20170301
  28. BUPIVACAINE. [Suspect]
     Active Substance: BUPIVACAINE
     Dosage: 8.404 MG, \DAY
     Dates: start: 20161209
  29. COMPOUNDED BACLOFEN [Suspect]
     Active Substance: BACLOFEN
     Indication: PAIN
     Dosage: 417.0 UNK, \DAY
     Route: 037
     Dates: start: 20160908, end: 20161013
  30. COMPOUNDED BACLOFEN [Suspect]
     Active Substance: BACLOFEN
     Dosage: 499.7 ?G, \DAY
     Dates: start: 20161013
  31. COMPOUNDED BACLOFEN [Suspect]
     Active Substance: BACLOFEN
     Dosage: 625.5 ?G, \DAY
     Route: 037
     Dates: start: 20161116, end: 20161209
  32. CLONIDINE. [Suspect]
     Active Substance: CLONIDINE
     Dosage: 84.04 ?G, \DAY
     Dates: start: 20161209
  33. CLONIDINE. [Suspect]
     Active Substance: CLONIDINE
     Dosage: 191.27 ?G, \DAY
     Dates: start: 20161209
  34. CLONIDINE. [Suspect]
     Active Substance: CLONIDINE
     Dosage: 129.28 UNK, UNK
     Dates: start: 20161219, end: 20170301
  35. MORPHINE [Suspect]
     Active Substance: MORPHINE
     Dosage: 9.495 MG, \DAY
     Dates: start: 20161013
  36. MORPHINE [Suspect]
     Active Substance: MORPHINE
     Dosage: 6.303 MG, \DAY
     Dates: start: 20161209
  37. BUPIVACAINE. [Suspect]
     Active Substance: BUPIVACAINE
     Dosage: 11.359 MG, \DAY
     Dates: start: 20160908, end: 20161013
  38. BUPIVACAINE. [Suspect]
     Active Substance: BUPIVACAINE
     Dosage: 8.936 MG, \DAY
     Dates: start: 20161013, end: 20161209
  39. BUPIVACAINE. [Suspect]
     Active Substance: BUPIVACAINE
     Dosage: 19.127 MG, \DAY
     Dates: start: 20161209
  40. MORPHINE [Suspect]
     Active Substance: MORPHINE
     Dosage: 14.179 MG, \DAY
     Dates: start: 20161116, end: 20161209
  41. MORPHINE [Suspect]
     Active Substance: MORPHINE
     Dosage: 14.345 MG, \DAY
     Dates: start: 20161209
  42. COMPOUNDED BACLOFEN [Suspect]
     Active Substance: BACLOFEN
     Dosage: 588.3 ?G, \DAY
     Dates: start: 20161209
  43. MORPHINE [Suspect]
     Active Substance: MORPHINE
     Dosage: 5.004 MG, \DAY
     Route: 037
     Dates: start: 20160908, end: 20161013
  44. BUPIVACAINE. [Suspect]
     Active Substance: BUPIVACAINE
     Dosage: 12.928 MG, \DAY
     Dates: start: 20161219, end: 20170301

REACTIONS (9)
  - Therapeutic product ineffective for unapproved indication [Unknown]
  - Muscular weakness [Not Recovered/Not Resolved]
  - Pain [Recovered/Resolved]
  - Nausea [Recovered/Resolved]
  - Hypotension [Recovered/Resolved]
  - Muscle spasms [Recovered/Resolved]
  - Hypoaesthesia [Recovered/Resolved]
  - Device kink [Unknown]
  - Gait disturbance [Not Recovered/Not Resolved]

NARRATIVE: CASE EVENT DATE: 20161111
